FAERS Safety Report 9768653 (Version 3)
Quarter: 2014Q1

REPORT INFORMATION
  Report Type: Spontaneous
  Country: US (occurrence: US)
  Receive Date: 20131218
  Receipt Date: 20140309
  Transmission Date: 20141002
  Serious: Yes (Other)
  Sender: FDA-Public Use
  Company Number: US-009507513-1312USA003640

PATIENT
  Age: 17 Year
  Sex: Female
  Weight: 114.29 kg

DRUGS (2)
  1. IMPLANON [Suspect]
     Indication: CONTRACEPTION
     Dosage: UNK
     Route: 059
     Dates: start: 200908
  2. DEPO-PROVERA [Concomitant]
     Indication: CONTRACEPTION

REACTIONS (4)
  - Complication of device removal [Unknown]
  - Device deployment issue [Unknown]
  - Medical device complication [Not Recovered/Not Resolved]
  - Incorrect drug administration duration [Unknown]
